FAERS Safety Report 10460686 (Version 2)
Quarter: 2014Q3

REPORT INFORMATION
  Report Type: Spontaneous
  Country: US (occurrence: US)
  Receive Date: 20140918
  Receipt Date: 20140918
  Transmission Date: 20150326
  Serious: No
  Sender: FDA-Public Use
  Company Number: US-TEVA-443407USA

PATIENT
  Age: 54 Year
  Sex: Female

DRUGS (12)
  1. TALACEN [Concomitant]
     Active Substance: ACETAMINOPHEN\PENTAZOCINE HYDROCHLORIDE
     Dosage: ONE Q 6-8 HOURS
  2. FLUOXETINE [Suspect]
     Active Substance: FLUOXETINE\FLUOXETINE HYDROCHLORIDE
     Dosage: 20 MILLIGRAM DAILY;
     Dates: end: 20131115
  3. LIPITOR [Concomitant]
     Active Substance: ATORVASTATIN CALCIUM
     Dosage: 40 MILLIGRAM DAILY;
  4. HYDROCHLOROTHIAZIDE. [Concomitant]
     Active Substance: HYDROCHLOROTHIAZIDE
     Dosage: 25 MILLIGRAM DAILY;
  5. LEVOTHYROXINE [Concomitant]
     Active Substance: LEVOTHYROXINE
     Dosage: 125 MICROGRAM DAILY;
  6. DITROPAN [Concomitant]
     Active Substance: OXYBUTYNIN CHLORIDE
     Dosage: 10 MILLIGRAM DAILY;
  7. VICTOZA [Concomitant]
     Active Substance: LIRAGLUTIDE
     Dosage: 1.8 MILLIGRAM DAILY;
  8. HUMULIN R [Concomitant]
     Active Substance: INSULIN HUMAN
     Dosage: 10 U IN AM, 8 U PM
  9. DANEXA [Concomitant]
     Dosage: 1000 MILLIGRAM DAILY;
  10. SINGULAIR [Concomitant]
     Active Substance: MONTELUKAST SODIUM
     Dosage: 10 MILLIGRAM DAILY;
  11. FUROSEMIDE. [Concomitant]
     Active Substance: FUROSEMIDE
     Dosage: 80 MILLIGRAM DAILY;
  12. PLAVIX [Concomitant]
     Active Substance: CLOPIDOGREL BISULFATE
     Dosage: 75 MILLIGRAM DAILY;

REACTIONS (5)
  - Product taste abnormal [Unknown]
  - Nausea [Recovered/Resolved]
  - Eructation [Unknown]
  - Dyspepsia [Unknown]
  - Product odour abnormal [Unknown]

NARRATIVE: CASE EVENT DATE: 20131024
